FAERS Safety Report 4599249-7 (Version None)
Quarter: 2005Q1

REPORT INFORMATION
  Report Type: 
  Country: None (occurrence: None)
  Receive Date: 20050302
  Receipt Date: 20050302
  Transmission Date: 20050727
  Serious: Yes (Other)
  Sender: FDA-Public Use
  Company Number: None

PATIENT
  Age: 76 Year
  Sex: Male

DRUGS (5)
  1. METFORMIN HCL [Suspect]
     Indication: DIABETES MELLITUS
     Dosage: TAKE 1 TAB IN AM 12 TAB AT NOON AND 1 TAB IN PM
     Dates: start: 20030101
  2. SPIRONOLACTONE [Concomitant]
  3. ADVAIR DISKUS 100/50 [Concomitant]
  4. ZOLOFT [Concomitant]
  5. CLONAZEPAM [Concomitant]

REACTIONS (2)
  - BLOOD GLUCOSE INCREASED [None]
  - PHARMACEUTICAL PRODUCT COMPLAINT [None]
